FAERS Safety Report 9635501 (Version 1)
Quarter: 2013Q4

REPORT INFORMATION
  Report Type: Spontaneous
  Country: US (occurrence: US)
  Receive Date: 20131021
  Receipt Date: 20131021
  Transmission Date: 20140711
  Serious: No
  Sender: FDA-Public Use
  Company Number: US-PURDUE-USA-2013-0103704

PATIENT
  Age: 53 Year
  Sex: Female

DRUGS (2)
  1. BUTRANS [Suspect]
     Indication: PAIN
     Dosage: 20 MCG/HR, 1/WEEK
     Route: 062
     Dates: start: 201206
  2. PERCOCET                           /00867901/ [Concomitant]
     Indication: BREAKTHROUGH PAIN
     Dosage: 1 TABLET (10/325MG), Q4H PRN
     Route: 048
     Dates: start: 201206, end: 201306

REACTIONS (2)
  - Drug effect decreased [Not Recovered/Not Resolved]
  - Product adhesion issue [Not Recovered/Not Resolved]
